FAERS Safety Report 22234542 (Version 1)
Quarter: 2023Q2

REPORT INFORMATION
  Report Type: Spontaneous
  Country: US (occurrence: None)
  Receive Date: 20230420
  Receipt Date: 20230420
  Transmission Date: 20230721
  Serious: No
  Sender: FDA-Public Use
  Company Number: US-ROCHE-3197326

PATIENT
  Sex: Female
  Weight: 37.228 kg

DRUGS (1)
  1. PIRFENIDONE [Suspect]
     Active Substance: PIRFENIDONE
     Indication: Idiopathic pulmonary fibrosis
     Dosage: THREE 267 MG PILL THREE TIMES A DAY ;ONGOING: YES
     Route: 065
     Dates: start: 2022

REACTIONS (1)
  - Rash [Not Recovered/Not Resolved]
